FAERS Safety Report 21747734 (Version 1)
Quarter: 2022Q4

REPORT INFORMATION
  Report Type: Report from Study
  Country: US (occurrence: US)
  Receive Date: 20221219
  Receipt Date: 20221219
  Transmission Date: 20230113
  Serious: No
  Sender: FDA-Public Use
  Company Number: US-ABBVIE-4241656

PATIENT
  Sex: Female

DRUGS (1)
  1. IMBRUVICA [Suspect]
     Active Substance: IBRUTINIB
     Indication: Chronic lymphocytic leukaemia
     Route: 048
     Dates: start: 202008

REACTIONS (5)
  - Bladder mass [Unknown]
  - Blood urine present [Unknown]
  - Calculus bladder [Unknown]
  - Bladder pain [Unknown]
  - Pollakiuria [Unknown]
